FAERS Safety Report 19379273 (Version 7)
Quarter: 2022Q1

REPORT INFORMATION
  Report Type: Other
  Country: BE (occurrence: None)
  Receive Date: 20210607
  Receipt Date: 20220121
  Transmission Date: 20220423
  Serious: Yes (Hospitalization, Other)
  Sender: FDA-Public Use
  Company Number: BE-ROCHE-2838688

PATIENT
  Age: 77 Year
  Sex: Male
  Weight: 104.4 kg

DRUGS (43)
  1. ATEZOLIZUMAB [Suspect]
     Active Substance: ATEZOLIZUMAB
     Indication: Small cell lung cancer extensive stage
     Route: 041
     Dates: start: 20210503
  2. CARBOPLATIN [Suspect]
     Active Substance: CARBOPLATIN
     Indication: Small cell lung cancer extensive stage
     Route: 065
     Dates: start: 20210503
  3. ETOPOSIDE [Suspect]
     Active Substance: ETOPOSIDE
     Indication: Small cell lung cancer extensive stage
     Route: 065
     Dates: start: 20210503
  4. IPRATROPIUM BROMIDE [Concomitant]
     Active Substance: IPRATROPIUM BROMIDE
     Indication: Lung neoplasm malignant
     Dates: start: 20210426, end: 20210512
  5. COPERINDO [Concomitant]
     Dates: start: 2006
  6. FUROSEMIDE [Concomitant]
     Active Substance: FUROSEMIDE
     Dates: start: 2017
  7. PREGABALIN [Concomitant]
     Active Substance: PREGABALIN
     Dates: start: 2017
  8. UREUM [Concomitant]
     Dates: start: 202003
  9. METFORMIN HYDROCHLORIDE [Concomitant]
     Active Substance: METFORMIN HYDROCHLORIDE
     Dates: start: 2016
  10. PANTOPRAZOLE [Concomitant]
     Active Substance: PANTOPRAZOLE
     Indication: Prophylaxis
     Dates: start: 2001
  11. TACROLIMUS [Concomitant]
     Active Substance: TACROLIMUS
     Dates: start: 20210205
  12. BETAHISTINE [Concomitant]
     Active Substance: BETAHISTINE
     Dates: start: 2016
  13. CETIRIZINE [Concomitant]
     Active Substance: CETIRIZINE HYDROCHLORIDE
     Dosage: PRN
     Dates: start: 202003
  14. BACLOFEN [Concomitant]
     Active Substance: BACLOFEN
     Dates: start: 20070110
  15. TAMSULOSIN HYDROCHLORIDE [Concomitant]
     Active Substance: TAMSULOSIN HYDROCHLORIDE
     Dates: start: 2018
  16. ENOXAPARIN SODIUM [Concomitant]
     Active Substance: ENOXAPARIN SODIUM
     Indication: Prophylaxis
     Dates: start: 20210428, end: 20210509
  17. HUMULINE [Concomitant]
     Dates: start: 20210426
  18. LIPEGFILGRASTIM [Concomitant]
     Active Substance: LIPEGFILGRASTIM
     Dosage: EVERY MORNING
     Dates: start: 20210506, end: 20210715
  19. MOVICOL [Concomitant]
     Active Substance: POLYETHYLENE GLYCOL 3350\POTASSIUM CHLORIDE\SODIUM BICARBONATE\SODIUM CHLORIDE
     Dosage: PRN
     Dates: start: 20210430, end: 20210505
  20. ACETAMINOPHEN [Concomitant]
     Active Substance: ACETAMINOPHEN
     Dosage: PRN
     Dates: start: 20210503, end: 20210505
  21. SODIUM PHOSPHATE, DIBASIC\SODIUM PHOSPHATE, MONOBASIC, ANHYDROUS [Concomitant]
     Active Substance: SODIUM PHOSPHATE, DIBASIC\SODIUM PHOSPHATE, MONOBASIC, ANHYDROUS
     Dates: start: 20210504, end: 20210504
  22. ASPIRIN [Concomitant]
     Active Substance: ASPIRIN
     Dates: start: 2001
  23. MINERAL OIL [Concomitant]
     Active Substance: MINERAL OIL
     Dosage: PRN
     Dates: start: 2006
  24. ISOSORBIDE DINITRATE [Concomitant]
     Active Substance: ISOSORBIDE DINITRATE
     Indication: Hypokalaemia
     Dates: start: 20210504, end: 20210504
  25. ALIZAPRIDE [Concomitant]
     Active Substance: ALIZAPRIDE
     Indication: Prophylaxis
     Dosage: PRN
     Dates: start: 20210507, end: 20210507
  26. ALIZAPRIDE [Concomitant]
     Active Substance: ALIZAPRIDE
     Dates: start: 20210504
  27. MAGNESIUM [Concomitant]
     Active Substance: MAGNESIUM
     Indication: Prophylaxis
     Dates: start: 202101
  28. METHYLPREDNISOLONE [Concomitant]
     Active Substance: METHYLPREDNISOLONE
     Indication: Prophylaxis
     Dates: start: 20210503
  29. AKYNZEO [Concomitant]
     Active Substance: NETUPITANT\PALONOSETRON HYDROCHLORIDE
     Indication: Prophylaxis
     Dates: start: 20210503
  30. HUMAN RED BLOOD CELL [Concomitant]
     Active Substance: HUMAN RED BLOOD CELL
  31. OXYCODONE [Concomitant]
     Active Substance: OXYCODONE
  32. FENTANYL [Concomitant]
     Active Substance: FENTANYL
  33. PIPERACILLIN SODIUM [Concomitant]
     Active Substance: PIPERACILLIN SODIUM
  34. HYDROCORTISONE [Concomitant]
     Active Substance: HYDROCORTISONE
     Dates: start: 20210914, end: 20210923
  35. VANCOMYCIN [Concomitant]
     Active Substance: VANCOMYCIN
  36. IBUPROFEN [Concomitant]
     Active Substance: IBUPROFEN
  37. MICONAZOLE [Concomitant]
     Active Substance: MICONAZOLE
  38. MEROPENEM [Concomitant]
     Active Substance: MEROPENEM
     Dates: start: 20210907, end: 20210918
  39. SOLU-CORTEF [Concomitant]
     Active Substance: HYDROCORTISONE SODIUM SUCCINATE
     Dates: start: 20210907, end: 20210913
  40. ULTRA-K [Concomitant]
     Dates: start: 20210913, end: 20210915
  41. INSULINE HUMAINE [Concomitant]
     Dates: start: 20210913
  42. ESCITALOPRAM [Concomitant]
     Active Substance: ESCITALOPRAM OXALATE
     Dates: start: 20210923
  43. ALLOPURINOL [Concomitant]
     Active Substance: ALLOPURINOL

REACTIONS (5)
  - Pancytopenia [Recovering/Resolving]
  - Hypokalaemia [Recovering/Resolving]
  - Liver function test increased [Recovering/Resolving]
  - Haematoma [Recovering/Resolving]
  - Contusion [Recovering/Resolving]

NARRATIVE: CASE EVENT DATE: 20210510
